FAERS Safety Report 9479097 (Version 1)
Quarter: 2013Q3

REPORT INFORMATION
  Report Type: Spontaneous
  Country: US (occurrence: US)
  Receive Date: 20130827
  Receipt Date: 20130827
  Transmission Date: 20140515
  Serious: Yes (Death)
  Sender: FDA-Public Use
  Company Number: US-GLAXOSMITHKLINE-A1039162A

PATIENT
  Age: 46 Year
  Sex: Female

DRUGS (4)
  1. TYKERB [Suspect]
     Indication: BREAST CANCER
     Dosage: 1250MG PER DAY
     Route: 048
     Dates: start: 20130610
  2. OXYCONTIN [Concomitant]
  3. OXYCODONE [Concomitant]
  4. REGLAN [Concomitant]

REACTIONS (1)
  - Death [Fatal]
